FAERS Safety Report 8999342 (Version 1)
Quarter: 2013Q1

REPORT INFORMATION
  Report Type: Spontaneous
  Country: US (occurrence: US)
  Receive Date: 20130103
  Receipt Date: 20130103
  Transmission Date: 20140127
  Serious: No
  Sender: FDA-Public Use
  Company Number: US-ASTRAZENECA-2012SE86525

PATIENT
  Age: 84 Year
  Sex: Female

DRUGS (27)
  1. NEXIUM [Suspect]
     Indication: GASTROOESOPHAGEAL REFLUX DISEASE
     Route: 048
  2. OXYCODONE [Concomitant]
  3. FLUTICASONE [Concomitant]
  4. LOMOTIL [Concomitant]
  5. ALDOMET [Concomitant]
  6. CITALOPRAM [Concomitant]
  7. DESYREL [Concomitant]
  8. DUONEB [Concomitant]
  9. LIPITOR [Concomitant]
  10. NITROSTAT [Concomitant]
  11. PREMARIN [Concomitant]
  12. ISMO [Concomitant]
  13. NITROFURANTOIN [Concomitant]
  14. POTASSIUM CHLORIDE [Concomitant]
  15. XANAX [Concomitant]
  16. NEURONTIN [Concomitant]
  17. ADVAIR [Concomitant]
  18. COREG [Concomitant]
  19. HYDROMET [Concomitant]
  20. LASIX [Concomitant]
  21. RANITIDINE HCL [Concomitant]
  22. LACTOBACILLUS RHAMNOSUS GG [Concomitant]
  23. CEPHALEXIN [Concomitant]
  24. ASPIRIN [Concomitant]
  25. CLEARLAX [Concomitant]
  26. WHEAT DEXTRIN [Concomitant]
  27. MULTI-VITAMIN ORAL [Concomitant]

REACTIONS (3)
  - Back pain [Unknown]
  - Bunion [Unknown]
  - Limb discomfort [Unknown]
